FAERS Safety Report 16095344 (Version 1)
Quarter: 2019Q2

REPORT INFORMATION
  Report Type: Spontaneous
  Country: US (occurrence: US)
  Receive Date: 20190320
  Receipt Date: 20190320
  Transmission Date: 20190711
  Serious: Yes (Hospitalization)
  Sender: FDA-Public Use
  Company Number: None

PATIENT
  Age: 60 Year
  Sex: Female
  Weight: 76.5 kg

DRUGS (5)
  1. VITAMIN B12 [Concomitant]
     Active Substance: CYANOCOBALAMIN
  2. SYNTHROID [Concomitant]
     Active Substance: LEVOTHYROXINE SODIUM
  3. OZEMPIC [Suspect]
     Active Substance: SEMAGLUTIDE
     Dosage: ?          OTHER FREQUENCY:WEEKLY;?
     Route: 058
     Dates: start: 20190213, end: 20190214
  4. ONGLYZA [Concomitant]
     Active Substance: SAXAGLIPTIN HYDROCHLORIDE
  5. GLIPIZIDE. [Concomitant]
     Active Substance: GLIPIZIDE

REACTIONS (8)
  - Chest pain [None]
  - Insomnia [None]
  - Pain in extremity [None]
  - Palpitations [None]
  - Back pain [None]
  - Dyspnoea [None]
  - Headache [None]
  - Nausea [None]

NARRATIVE: CASE EVENT DATE: 20190214
